FAERS Safety Report 4921462-7 (Version None)
Quarter: 2005Q4

REPORT INFORMATION
  Report Type: 
  Country: None (occurrence: None)
  Receive Date: 20050913
  Receipt Date: 20050913
  Transmission Date: 20060501
  Serious: Yes (Life-Threatening, Hospitalization)
  Sender: FDA-Public Use
  Company Number: None

PATIENT
  Age: 8 Year
  Sex: Female
  Weight: 21.3 kg

DRUGS (2)
  1. CREON [Suspect]
     Indication: CYSTIC FIBROSIS
     Dosage: 5 W/MEALS 2-3 W/ SNACKS
  2. CREON [Suspect]
     Indication: PANCREATIC INSUFFICIENCY
     Dosage: 5 W/MEALS 2-3 W/ SNACKS

REACTIONS (2)
  - MALNUTRITION [None]
  - WEIGHT GAIN POOR [None]
